FAERS Safety Report 4294038-5 (Version None)
Quarter: 2004Q1

REPORT INFORMATION
  Report Type: 
  Country: None (occurrence: None)
  Receive Date: 20040211
  Receipt Date: 20040127
  Transmission Date: 20041129
  Serious: Yes (Hospitalization)
  Sender: FDA-Public Use
  Company Number: FABR-10457

PATIENT
  Age: 25 Year
  Sex: Male
  Weight: 74 kg

DRUGS (6)
  1. FABRAZYME [Suspect]
     Indication: FABRY'S DISEASE
     Dosage: 1 MG/KG Q2WKS IV
     Route: 042
     Dates: start: 20030922
  2. PENTOXYPHILLINE [Concomitant]
  3. PIRACETAM [Concomitant]
  4. BETAHISTINIUM CHLORATUM [Concomitant]
  5. ACETYLSALYCYLICUM [Concomitant]
  6. NIMESULIDUM [Concomitant]

REACTIONS (6)
  - BRONCHITIS [None]
  - CHILLS [None]
  - DIASTOLIC HYPERTENSION [None]
  - FEELING COLD [None]
  - PYREXIA [None]
  - TACHYCARDIA [None]
